FAERS Safety Report 5009590-1 (Version None)
Quarter: 2006Q2

REPORT INFORMATION
  Report Type: 
  Country: None (occurrence: None)
  Receive Date: 20060524
  Receipt Date: 20060515
  Transmission Date: 20061013
  Serious: Yes (Hospitalization)
  Sender: FDA-Public Use
  Company Number: 2006PK01116

PATIENT
  Sex: Female

DRUGS (2)
  1. SCANDICAIN 1% [Suspect]
     Indication: PAIN IN EXTREMITY
     Route: 050
     Dates: start: 20041201
  2. DIPROPHOS [Suspect]
     Indication: PAIN IN EXTREMITY
     Route: 050
     Dates: start: 20041201

REACTIONS (26)
  - ALLERGY TO CHEMICALS [None]
  - BACTERIA SPUTUM IDENTIFIED [None]
  - BLOOD PRESSURE INCREASED [None]
  - BURNING SENSATION [None]
  - CERVICOBRACHIAL SYNDROME [None]
  - DIARRHOEA [None]
  - DYSGEUSIA [None]
  - FATIGUE [None]
  - FEAR [None]
  - FUNGUS SPUTUM TEST POSITIVE [None]
  - HEART RATE INCREASED [None]
  - HYPOAESTHESIA ORAL [None]
  - INJECTION SITE IRRITATION [None]
  - MUSCLE TWITCHING [None]
  - NICKEL SENSITIVITY [None]
  - PALPITATIONS [None]
  - PARAESTHESIA ORAL [None]
  - PERIPHERAL COLDNESS [None]
  - PETIT MAL EPILEPSY [None]
  - RESPIRATORY RATE INCREASED [None]
  - RESTLESSNESS [None]
  - SKIN DISORDER [None]
  - SPEECH DISORDER [None]
  - TINNITUS [None]
  - TREMOR [None]
  - VOMITING [None]
